FAERS Safety Report 8480938-9 (Version None)
Quarter: 2012Q3

REPORT INFORMATION
  Report Type: 
  Country: None (occurrence: None)
  Receive Date: 20120702
  Receipt Date: 20120621
  Transmission Date: 20120928
  Serious: Yes (Hospitalization, Other)
  Sender: FDA-Public Use
  Company Number: US-JNJFOC-20120611780

PATIENT
  Sex: Female
  Weight: 55.34 kg

DRUGS (2)
  1. REMICADE [Suspect]
     Indication: ANKYLOSING SPONDYLITIS
     Route: 042
  2. PREDNISONE TAB [Concomitant]
     Indication: ANKYLOSING SPONDYLITIS
     Route: 065

REACTIONS (6)
  - PNEUMONIA [None]
  - SKIN DISCOLOURATION [None]
  - HYPERTENSION [None]
  - DIARRHOEA [None]
  - BLOOD CHOLESTEROL INCREASED [None]
  - DEHYDRATION [None]
